FAERS Safety Report 7569212-2 (Version None)
Quarter: 2011Q2

REPORT INFORMATION
  Report Type: 
  Country: None (occurrence: None)
  Receive Date: 20110623
  Receipt Date: 20110610
  Transmission Date: 20111010
  Serious: Yes (Other)
  Sender: FDA-Public Use
  Company Number: PHHY2011BR51842

PATIENT
  Age: 70 Year
  Sex: Female

DRUGS (1)
  1. VOLTAREN [Suspect]
     Dosage: 50 MG, UNK
     Dates: start: 19900101

REACTIONS (4)
  - PAIN [None]
  - RAYNAUD'S PHENOMENON [None]
  - HYPERTENSION [None]
  - BONE DISORDER [None]
